FAERS Safety Report 24363155 (Version 4)
Quarter: 2024Q4

REPORT INFORMATION
  Report Type: Spontaneous
  Country: US (occurrence: US)
  Receive Date: 20240925
  Receipt Date: 20241119
  Transmission Date: 20250115
  Serious: Yes (Other)
  Sender: PFIZER
  Company Number: US-PFIZER INC-202400263498

PATIENT
  Age: 69 Year
  Sex: Female

DRUGS (1)
  1. XELJANZ XR [Suspect]
     Active Substance: TOFACITINIB CITRATE
     Dosage: 11MG TABLET 1 (ONE) ORAL DAILY
     Route: 048
     Dates: start: 20240328

REACTIONS (12)
  - Neoplasm malignant [Unknown]
  - Illness [Unknown]
  - Arthralgia [Recovering/Resolving]
  - Inflammatory marker increased [Unknown]
  - Pain in extremity [Unknown]
  - Joint stiffness [Unknown]
  - Fibromyalgia [Unknown]
  - Arthropathy [Unknown]
  - Joint swelling [Unknown]
  - Musculoskeletal stiffness [Unknown]
  - Ill-defined disorder [Unknown]
  - Inflammation [Unknown]
